FAERS Safety Report 9992390 (Version 1)
Quarter: 2014Q1

REPORT INFORMATION
  Report Type: Spontaneous
  Country: US (occurrence: US)
  Receive Date: 20140310
  Receipt Date: 20140310
  Transmission Date: 20141002
  Serious: Yes (Hospitalization)
  Sender: FDA-Public Use
  Company Number: US-GLAXOSMITHKLINE-A1064088A

PATIENT
  Age: 12 Year
  Sex: Male

DRUGS (3)
  1. ADVAIR HFA [Suspect]
     Indication: ASTHMA
     Dates: start: 20100610
  2. FLONASE [Suspect]
     Indication: ASTHMA
     Route: 045
     Dates: start: 20100610
  3. VENTOLIN [Suspect]
     Indication: ASTHMA
     Route: 055
     Dates: start: 20110609

REACTIONS (1)
  - Investigation [Unknown]
